FAERS Safety Report 12592792 (Version 5)
Quarter: 2017Q1

REPORT INFORMATION
  Report Type: Spontaneous
  Country: US (occurrence: US)
  Receive Date: 20160726
  Receipt Date: 20170331
  Transmission Date: 20170428
  Serious: No
  Sender: FDA-Public Use
  Company Number: US-PFIZER INC-2016340307

PATIENT
  Age: 60 Year
  Sex: Female
  Weight: 77.98 kg

DRUGS (4)
  1. IBRANCE [Suspect]
     Active Substance: PALBOCICLIB
     Indication: BREAST CANCER METASTATIC
     Dosage: 125 MG, CYCLIC (DAYS 1-21 EVERY 28 DAYS)
     Route: 048
     Dates: start: 20160621
  2. IBRANCE [Suspect]
     Active Substance: PALBOCICLIB
     Dosage: 125 MG, CYCLIC (DAYS 1-21 EVERY 28 DAYS)
     Route: 048
  3. IBRANCE [Suspect]
     Active Substance: PALBOCICLIB
     Dosage: 125 MG, CYCLIC (DAYS 1-21 EVERY 28 DAYS)
     Route: 048
     Dates: end: 20170323
  4. IBRANCE [Suspect]
     Active Substance: PALBOCICLIB
     Dosage: 125 MG, CYCLIC (DAYS 1-21 EVERY 28 DAYS)
     Route: 048

REACTIONS (7)
  - Nasopharyngitis [Recovered/Resolved]
  - Insomnia [Unknown]
  - Blood potassium increased [Unknown]
  - Tumour marker increased [Unknown]
  - White blood cell count decreased [Unknown]
  - Cough [Recovered/Resolved]
  - Sinus congestion [Recovered/Resolved]

NARRATIVE: CASE EVENT DATE: 20160707
